FAERS Safety Report 17220409 (Version 1)
Quarter: 2019Q4

REPORT INFORMATION
  Report Type: Spontaneous
  Country: IT (occurrence: IT)
  Receive Date: 20191231
  Receipt Date: 20191231
  Transmission Date: 20200122
  Serious: Yes (Hospitalization, Other)
  Sender: FDA-Public Use
  Company Number: IT-GALDERMA-IT19077440

PATIENT
  Age: 57 Year
  Sex: Female

DRUGS (6)
  1. CETUXIMAB. [Concomitant]
     Active Substance: CETUXIMAB
     Indication: ADENOCARCINOMA OF COLON
     Dosage: 500 MG/M2
     Route: 041
     Dates: start: 20150909
  2. OXALIPLATIN. [Concomitant]
     Active Substance: OXALIPLATIN
     Indication: ADENOCARCINOMA OF COLON
     Route: 065
     Dates: start: 20150812, end: 20150923
  3. 5 FLUOROURACIL [Concomitant]
     Active Substance: FLUOROURACIL
     Dosage: 600 MG/M2, IN 22 HOURS ON DAYS 1 AND 2
     Route: 041
  4. FOLINIC ACID [Concomitant]
     Active Substance: LEUCOVORIN
     Indication: ADENOCARCINOMA OF COLON
     Route: 065
  5. 5 FLUOROURACIL [Concomitant]
     Active Substance: FLUOROURACIL
     Indication: ADENOCARCINOMA OF COLON
     Dosage: 400 MG/M2, IN TWO HOURS
     Route: 040
     Dates: start: 20150812
  6. METRONIDAZOLE. [Suspect]
     Active Substance: METRONIDAZOLE
     Indication: PRODUCT USED FOR UNKNOWN INDICATION
     Route: 065

REACTIONS (13)
  - Pain [Unknown]
  - Haptoglobin decreased [Recovered/Resolved]
  - Leukocytosis [Unknown]
  - Haemolytic anaemia [Recovered/Resolved]
  - Asthenia [Recovered/Resolved]
  - Hyperbilirubinaemia [Recovered/Resolved]
  - Reticulocytosis [Recovered/Resolved]
  - Acute pulmonary oedema [Unknown]
  - Acute kidney injury [Unknown]
  - Red cell fragmentation syndrome [Recovered/Resolved]
  - Disorientation [Recovered/Resolved]
  - Abdominal distension [Recovered/Resolved]
  - Atypical haemolytic uraemic syndrome [Unknown]

NARRATIVE: CASE EVENT DATE: 20151015
